FAERS Safety Report 13653636 (Version 1)
Quarter: 2017Q2

REPORT INFORMATION
  Report Type: Spontaneous
  Country: FR (occurrence: FR)
  Receive Date: 20170614
  Receipt Date: 20170614
  Transmission Date: 20170830
  Serious: Yes (Hospitalization)
  Sender: FDA-Public Use
  Company Number: FR-PFIZER INC-2017250728

PATIENT
  Age: 49 Year
  Sex: Male

DRUGS (3)
  1. STILNOX [Suspect]
     Active Substance: ZOLPIDEM TARTRATE
     Dosage: 14 DF, SINGLE
  2. XANAX [Suspect]
     Active Substance: ALPRAZOLAM
     Dosage: 20 DF, SINGLE
  3. TOBACCO [Suspect]
     Active Substance: TOBACCO LEAF
     Dosage: UNK
     Route: 055

REACTIONS (5)
  - Intentional product misuse [Recovered/Resolved with Sequelae]
  - Toxicity to various agents [Recovered/Resolved]
  - Drug abuser [Recovering/Resolving]
  - Overdose [Recovered/Resolved]
  - Drug use disorder [Not Recovered/Not Resolved]
